FAERS Safety Report 9597655 (Version 1)
Quarter: 2013Q4

REPORT INFORMATION
  Report Type: Spontaneous
  Country: US (occurrence: US)
  Receive Date: 20131004
  Receipt Date: 20131004
  Transmission Date: 20140711
  Serious: No
  Sender: FDA-Public Use
  Company Number: US-AMGEN-USASP2013019969

PATIENT
  Age: 50 Year
  Sex: Female
  Weight: 52.61 kg

DRUGS (8)
  1. ENBREL [Suspect]
     Indication: RHEUMATOID ARTHRITIS
     Dosage: 50 MG, EVERY 7 DAYS
     Route: 058
  2. METHOTREXATE [Concomitant]
     Dosage: 2.5 MG, UNK
  3. PREDNISONE [Concomitant]
     Dosage: 1 MG, UNK
  4. TRAMADOL HCL [Concomitant]
     Dosage: 50 MG, UNK
  5. PRILOSEC                           /00661201/ [Concomitant]
     Dosage: 40 MG, UNK
  6. CALCIUM + VIT D [Concomitant]
     Dosage: 500 UNK, UNK
  7. PERCOCET                           /00867901/ [Concomitant]
     Dosage: 10-325 MG, UNK
  8. FOLIC ACID [Concomitant]
     Dosage: UNK

REACTIONS (2)
  - Vomiting [Unknown]
  - Dehydration [Unknown]
